FAERS Safety Report 15498029 (Version 1)
Quarter: 2018Q4

REPORT INFORMATION
  Report Type: Other
  Country: FR (occurrence: FR)
  Receive Date: 20181015
  Receipt Date: 20181015
  Transmission Date: 20190205
  Serious: Yes (Other)
  Sender: FDA-Public Use
  Company Number: FR-CELLTRION INC.-2018FR023030

PATIENT

DRUGS (1)
  1. REMSIMA [Suspect]
     Active Substance: INFLIXIMAB
     Indication: ANKYLOSING SPONDYLITIS
     Dosage: UNK
     Route: 041
     Dates: start: 20180515, end: 20180515

REACTIONS (2)
  - Therapeutic response changed [Not Recovered/Not Resolved]
  - Ankylosing spondylitis [Not Recovered/Not Resolved]

NARRATIVE: CASE EVENT DATE: 201807
